FAERS Safety Report 5411249-3 (Version None)
Quarter: 2007Q3

REPORT INFORMATION
  Report Type: 
  Country: None (occurrence: None)
  Receive Date: 20070810
  Receipt Date: 20070808
  Transmission Date: 20080115
  Serious: Yes (Hospitalization)
  Sender: FDA-Public Use
  Company Number: D0054236A

PATIENT
  Age: 46 Year
  Sex: Male
  Weight: 95 kg

DRUGS (6)
  1. QUILONUM RETARD [Suspect]
     Dosage: 450MG SEE DOSAGE TEXT
     Route: 048
     Dates: start: 20070807, end: 20070807
  2. ERGENYL CHRONO [Suspect]
     Dosage: 5000MG PER DAY
     Route: 048
     Dates: start: 20070807, end: 20070807
  3. SPIRITS [Suspect]
     Dosage: .75L SEE DOSAGE TEXT
     Route: 048
     Dates: start: 20070807, end: 20070807
  4. SEROQUEL [Suspect]
     Dosage: 2500MG PER DAY
     Route: 048
     Dates: start: 20070807, end: 20070807
  5. STANGYL [Suspect]
     Dosage: 1000MG PER DAY
     Route: 048
     Dates: start: 20070807, end: 20070807
  6. TREVILOR [Suspect]
     Dosage: 75MG SEE DOSAGE TEXT
     Route: 048
     Dates: start: 20070807, end: 20070807

REACTIONS (3)
  - COMA [None]
  - INTENTIONAL OVERDOSE [None]
  - SUICIDE ATTEMPT [None]
